FAERS Safety Report 6557828-1 (Version None)
Quarter: 2010Q1

REPORT INFORMATION
  Report Type: 
  Country: None (occurrence: None)
  Receive Date: 20100129
  Receipt Date: 20090818
  Transmission Date: 20100710
  Serious: No
  Sender: FDA-Public Use
  Company Number: US-BAUSCH-2009BL004158

PATIENT
  Age: 41 Year
  Sex: Female

DRUGS (3)
  1. NEOMYCIN AND POLYMXIN B SULFATES AND HYDROCORTISONE [Suspect]
     Indication: CORRECTIVE LENS USER
     Route: 047
     Dates: start: 20090818, end: 20090818
  2. RENU MULTIPLUS LUBRICATING + REWETTING DROPS [Concomitant]
     Indication: CORRECTIVE LENS USER
     Route: 047
  3. ACTOS ^LILLY^ [Concomitant]
     Indication: DIABETES MELLITUS
     Route: 048

REACTIONS (4)
  - EYE IRRITATION [None]
  - EYELID OEDEMA [None]
  - PHOTOPHOBIA [None]
  - WRONG DRUG ADMINISTERED [None]
